FAERS Safety Report 20609733 (Version 1)
Quarter: 2022Q1

REPORT INFORMATION
  Report Type: Spontaneous
  Country: US (occurrence: US)
  Receive Date: 20220318
  Receipt Date: 20220318
  Transmission Date: 20220423
  Serious: Yes (Other)
  Sender: FDA-Public Use
  Company Number: US-drreddys-SPO/USA/22/0147672

PATIENT
  Age: 41 Year
  Sex: Female

DRUGS (1)
  1. ZENATANE [Suspect]
     Active Substance: ISOTRETINOIN
     Indication: Product used for unknown indication
     Dosage: RMA ISSUE DATE: 10 FEBRUARY 2022 02:32:53 PM, 10 JANUARY 2022 06:03:28 PM, 06 DECEMBER 2021 02:48:50

REACTIONS (1)
  - Cerebrovascular accident [Unknown]
